FAERS Safety Report 9288404 (Version 1)
Quarter: 2013Q2

REPORT INFORMATION
  Report Type: Spontaneous
  Country: IT (occurrence: None)
  Receive Date: 20130509
  Receipt Date: 20130509
  Transmission Date: 20140414
  Serious: Yes (Hospitalization)
  Sender: FDA-Public Use
  Company Number: 2013AP004915

PATIENT
  Age: 61 Year
  Sex: Male

DRUGS (5)
  1. RAMIPRIL (RAMIPRIL) [Suspect]
     Indication: HYPERTENSION
     Route: 048
     Dates: start: 20110101, end: 20130415
  2. FULCRO (FENOFIBRATE) [Concomitant]
  3. COMPETACT (MOPADAY) [Concomitant]
  4. IPERTEN (MANIDIPINE HYDROCHLORIDE) [Concomitant]
  5. SIVASTIN (SIMVASTATIN) [Concomitant]

REACTIONS (2)
  - Pharyngeal oedema [None]
  - Dysphagia [None]
